FAERS Safety Report 5591444-3 (Version None)
Quarter: 2008Q1

REPORT INFORMATION
  Report Type: 
  Country: None (occurrence: None)
  Receive Date: 20080111
  Receipt Date: 20071228
  Transmission Date: 20080703
  Serious: Yes (Death)
  Sender: FDA-Public Use
  Company Number: US022008

PATIENT
  Age: 35 Year
  Sex: Male
  Weight: 75.7 kg

DRUGS (3)
  1. FENTANYL [Suspect]
     Dosage: ONCE
  2. NICOTINE [Concomitant]
  3. CAFFEINE CITRATE [Concomitant]

REACTIONS (2)
  - ACCIDENTAL DEATH [None]
  - DRUG TOXICITY [None]
